FAERS Safety Report 23325580 (Version 2)
Quarter: 2024Q1

REPORT INFORMATION
  Report Type: Spontaneous
  Country: IE (occurrence: IE)
  Receive Date: 20231221
  Receipt Date: 20240103
  Transmission Date: 20240410
  Serious: Yes (Other)
  Sender: FDA-Public Use
  Company Number: IE-MYLANLABS-2023M1134674

PATIENT
  Sex: Male

DRUGS (6)
  1. CLOZARIL [Suspect]
     Active Substance: CLOZAPINE
     Indication: Schizophrenia
     Dosage: UNK
     Route: 048
     Dates: start: 20231123
  2. CLOZARIL [Suspect]
     Active Substance: CLOZAPINE
     Dosage: 150 MILLIGRAM, BID
     Route: 048
     Dates: start: 20231127, end: 20231212
  3. RISPERIDONE [Concomitant]
     Active Substance: RISPERIDONE
     Indication: Schizophrenia
     Dosage: 4 MILLIGRAM, BID
     Route: 048
     Dates: start: 20231206
  4. BIPERIDEN [Concomitant]
     Active Substance: BIPERIDEN
     Indication: Extrapyramidal disorder
     Dosage: 4 MILLIGRAM, BID
     Route: 048
     Dates: start: 20231211
  5. PROPRANOLOL [Concomitant]
     Active Substance: PROPRANOLOL HYDROCHLORIDE
     Indication: Akathisia
     Dosage: 10 MILLIGRAM, TID
     Route: 048
     Dates: start: 20231214
  6. HALOPERIDOL [Concomitant]
     Active Substance: HALOPERIDOL
     Indication: Schizophrenia
     Dosage: 2 MILLIGRAM, QD
     Route: 048
     Dates: start: 20231115

REACTIONS (2)
  - Myocarditis [Recovered/Resolved]
  - Drug intolerance [Recovered/Resolved]
